FAERS Safety Report 9544166 (Version 1)
Quarter: 2013Q3

REPORT INFORMATION
  Report Type: Report from Study
  Country: US (occurrence: US)
  Receive Date: 20130923
  Receipt Date: 20130923
  Transmission Date: 20140515
  Serious: Yes (Hospitalization, Other)
  Sender: FDA-Public Use
  Company Number: US-TAKEDA-2013TUS000776

PATIENT
  Sex: 0

DRUGS (9)
  1. COLCHICINE [Suspect]
     Indication: GOUT
     Dosage: 0.6 MG, QD
     Route: 048
     Dates: start: 1995, end: 20130615
  2. COLCHICINE [Suspect]
     Dosage: 0.6 MG, QD
     Route: 048
     Dates: start: 20130618, end: 20130618
  3. COLCHICINE [Suspect]
     Dosage: 1.2 MG, QD
     Route: 048
     Dates: start: 20130618, end: 20130618
  4. COLCHICINE [Suspect]
     Dosage: UNK
     Dates: start: 20130517, end: 20130520
  5. PREPARATIONS INCREASING URIC ACID EXCRETION [Concomitant]
     Dosage: UNK
     Dates: start: 20130322, end: 20130618
  6. PREDNISONE [Concomitant]
     Dosage: UNK
     Dates: start: 20130422, end: 20130424
  7. PREDNISONE [Concomitant]
     Dosage: UNK
     Dates: start: 20130424, end: 20130426
  8. DICLOFENAC [Concomitant]
     Dosage: UNK
     Dates: start: 2012, end: 20130307
  9. ALLOPURINOL [Concomitant]
     Dosage: UNK
     Dates: start: 2000, end: 2000

REACTIONS (2)
  - Renal failure [Recovered/Resolved with Sequelae]
  - Drug ineffective [Unknown]
